FAERS Safety Report 15004180 (Version 1)
Quarter: 2018Q3

REPORT INFORMATION
  Report Type: Spontaneous
  Country: GB (occurrence: GB)
  Receive Date: 20180613
  Receipt Date: 20180613
  Transmission Date: 20181010
  Serious: No
  Sender: FDA-Public Use
  Company Number: GB-B. BRAUN MEDICAL INC.-2049326

PATIENT
  Age: 44 Year

DRUGS (2)
  1. SODIUM CHLORIDE. [Suspect]
     Active Substance: SODIUM CHLORIDE
     Route: 065
  2. CEFTAZIDIME AND DEXTROSE [Suspect]
     Active Substance: CEFTAZIDIME
     Route: 065

REACTIONS (1)
  - Adverse drug reaction [None]
